FAERS Safety Report 7508574-9 (Version None)
Quarter: 2011Q2

REPORT INFORMATION
  Report Type: 
  Country: None (occurrence: None)
  Receive Date: 20110527
  Receipt Date: 20110513
  Transmission Date: 20111010
  Serious: Yes (Other)
  Sender: FDA-Public Use
  Company Number: JP-MYLANLABS-2011S1010194

PATIENT
  Age: 80 Year
  Sex: Female

DRUGS (2)
  1. PACLITAXEL [Concomitant]
     Indication: OVARIAN CANCER
     Route: 065
  2. CARBOPLATIN [Suspect]
     Indication: OVARIAN CANCER
     Route: 042

REACTIONS (2)
  - DRUG HYPERSENSITIVITY [None]
  - SHOCK [None]
